FAERS Safety Report 21050535 (Version 1)
Quarter: 2022Q3

REPORT INFORMATION
  Report Type: Spontaneous
  Country: US (occurrence: US)
  Receive Date: 20220707
  Receipt Date: 20220707
  Transmission Date: 20221026
  Serious: No
  Sender: FDA-Public Use
  Company Number: US-ELI_LILLY_AND_COMPANY-US202207001265

PATIENT
  Sex: Female

DRUGS (1)
  1. HUMALOG KWIKPEN [Suspect]
     Active Substance: INSULIN LISPRO
     Indication: Type 2 diabetes mellitus
     Dosage: 70 U, DAILY
     Route: 058

REACTIONS (2)
  - Glycosylated haemoglobin abnormal [Recovering/Resolving]
  - Wrong technique in product usage process [Unknown]
